FAERS Safety Report 21621464 (Version 1)
Quarter: 2022Q4

REPORT INFORMATION
  Report Type: Spontaneous
  Country: US (occurrence: None)
  Receive Date: 20221118
  Receipt Date: 20221118
  Transmission Date: 20230113
  Serious: Yes (Death)
  Sender: FDA-Public Use
  Company Number: None

PATIENT
  Age: 34 Year
  Sex: Male
  Weight: 109.5 kg

DRUGS (1)
  1. THYMOGLOBULIN [Suspect]
     Active Substance: LAPINE T-LYMPHOCYTE IMMUNE GLOBULIN
     Indication: Transplant
     Dosage: FREQUENCY : ONCE;?
     Route: 042
     Dates: start: 20221117, end: 20221117

REACTIONS (5)
  - Hypotension [None]
  - Anaphylactic reaction [None]
  - Cardiac arrest [None]
  - Ventricular fibrillation [None]
  - Pulseless electrical activity [None]

NARRATIVE: CASE EVENT DATE: 20221117
